FAERS Safety Report 10613045 (Version 2)
Quarter: 2014Q4

REPORT INFORMATION
  Report Type: Report from Study
  Country: AR (occurrence: AR)
  Receive Date: 20141127
  Receipt Date: 20141127
  Transmission Date: 20150529
  Serious: Yes (Other)
  Sender: FDA-Public Use
  Company Number: PHHY2013AR154609

PATIENT
  Sex: Male

DRUGS (1)
  1. DIOVAN [Suspect]
     Active Substance: VALSARTAN
     Indication: HYPERTENSION
     Dosage: 0.5 DF (320 MG), BID
     Route: 048

REACTIONS (4)
  - Neoplasm malignant [Recovered/Resolved]
  - Wrong technique in drug usage process [Unknown]
  - Clear cell renal cell carcinoma [Recovered/Resolved]
  - Anxiety [Unknown]
